FAERS Safety Report 15478551 (Version 1)
Quarter: 2018Q4

REPORT INFORMATION
  Report Type: Spontaneous
  Country: US (occurrence: US)
  Receive Date: 20181009
  Receipt Date: 20181009
  Transmission Date: 20190205
  Serious: Yes (Death)
  Sender: FDA-Public Use
  Company Number: US-ENDO PHARMACEUTICALS INC-2018-041380

PATIENT
  Age: 46 Year
  Sex: Male

DRUGS (2)
  1. ALCOHOL. [Suspect]
     Active Substance: ALCOHOL
     Indication: PRODUCT USED FOR UNKNOWN INDICATION
     Dosage: UNK UNKNOWN, UNKNOWN
     Route: 065
  2. PERCOCET [Suspect]
     Active Substance: ACETAMINOPHEN\OXYCODONE HYDROCHLORIDE
     Indication: ANKLE FRACTURE
     Dosage: UNK UNKNOWN, UNKNOWN
     Route: 065
     Dates: start: 20120406

REACTIONS (3)
  - Toxicity to various agents [Fatal]
  - Alcohol abuse [Fatal]
  - Drug abuse [Fatal]

NARRATIVE: CASE EVENT DATE: 20120408
